FAERS Safety Report 23535123 (Version 1)
Quarter: 2024Q1

REPORT INFORMATION
  Report Type: Spontaneous
  Country: RO (occurrence: RO)
  Receive Date: 20240217
  Receipt Date: 20240217
  Transmission Date: 20240409
  Serious: Yes (Other)
  Sender: FDA-Public Use
  Company Number: RO-PFIZER INC-PV202300188213

PATIENT
  Age: 52 Year
  Sex: Female

DRUGS (6)
  1. GOSERELIN [Suspect]
     Active Substance: GOSERELIN
     Indication: Breast cancer
     Dosage: 3.6 MG, MONTHLY, 1 VIAL /4 WEEKS
     Route: 058
     Dates: start: 20190731
  2. IBRANCE [Suspect]
     Active Substance: PALBOCICLIB
     Indication: Breast cancer
     Dosage: 100 MG
     Route: 065
     Dates: start: 202001
  3. IBRANCE [Suspect]
     Active Substance: PALBOCICLIB
     Dosage: 1 DF, CYCLIC (21 DAYS FOLLOWED BY 7 DAYS OFF, 1-0-0)
     Route: 065
     Dates: start: 20190731
  4. IBRANCE [Suspect]
     Active Substance: PALBOCICLIB
     Dosage: 75 MG
     Route: 065
     Dates: start: 202005
  5. LETROZOLE [Suspect]
     Active Substance: LETROZOLE
     Indication: Breast cancer
     Dosage: 2.5 MG, 1X/DAY (1-0-0)
     Route: 065
     Dates: start: 20190731
  6. ZOLEDRONIC ACID [Suspect]
     Active Substance: ZOLEDRONIC ACID
     Indication: Breast cancer
     Dosage: 4 MG, MONTHLYINTRAVENOUS PERFUSION/4 WEEKS
     Route: 042
     Dates: start: 20190731

REACTIONS (1)
  - Oophorectomy bilateral [Unknown]

NARRATIVE: CASE EVENT DATE: 20191101
